FAERS Safety Report 11730322 (Version 3)
Quarter: 2016Q4

REPORT INFORMATION
  Report Type: Spontaneous
  Country: FR (occurrence: FR)
  Receive Date: 20151112
  Receipt Date: 20161219
  Transmission Date: 20170206
  Serious: Yes (Hospitalization, Congenital Anomaly, Other)
  Sender: FDA-Public Use
  Company Number: FR-ABBVIE-15P-056-1499029-00

PATIENT
  Sex: Male

DRUGS (1)
  1. DEPAKINE [Suspect]
     Active Substance: VALPROATE SODIUM
     Indication: MATERNAL EXPOSURE TIMING UNSPECIFIED
     Route: 064

REACTIONS (48)
  - Gastrointestinal disorder [Recovered/Resolved]
  - Tracheitis [Unknown]
  - Fall [Unknown]
  - Febrile convulsion [Unknown]
  - Myringitis [Unknown]
  - Foetal anticonvulsant syndrome [Unknown]
  - Congenital infection [Recovered/Resolved]
  - Foetal exposure during pregnancy [Unknown]
  - Nasopharyngitis [Unknown]
  - Ear infection [Unknown]
  - Enuresis [Unknown]
  - Intellectual disability [Unknown]
  - Rhinitis [Unknown]
  - Speech disorder developmental [Unknown]
  - Autism [Unknown]
  - Dyskinesia [Unknown]
  - Encephalopathy [Unknown]
  - Intestinal obstruction [Recovered/Resolved]
  - Nasopharyngitis [Unknown]
  - Rhinitis [Unknown]
  - Prominent epicanthal folds [Unknown]
  - Abnormal behaviour [Recovering/Resolving]
  - Bruxism [Unknown]
  - Musculoskeletal stiffness [Unknown]
  - Anxiety [Unknown]
  - Epilepsy [Recovered/Resolved]
  - Arnold-Chiari malformation [Unknown]
  - Faecaloma [Recovered/Resolved]
  - Congenital oral malformation [Unknown]
  - Congenital heart valve disorder [Not Recovered/Not Resolved]
  - Mitral valve incompetence [Not Recovered/Not Resolved]
  - Aggression [Unknown]
  - Psychomotor hyperactivity [Unknown]
  - Dyspraxia [Unknown]
  - Lordosis [Unknown]
  - Multiple congenital abnormalities [Unknown]
  - Dysmorphism [Not Recovered/Not Resolved]
  - Hypermobility syndrome [Not Recovered/Not Resolved]
  - Developmental delay [Not Recovered/Not Resolved]
  - Hypotonia [Unknown]
  - Coordination abnormal [Unknown]
  - Mitral valve prolapse [Not Recovered/Not Resolved]
  - Adenoidectomy [Unknown]
  - Otitis media [Unknown]
  - Ear malformation [Unknown]
  - Social problem [Unknown]
  - Incontinence [Unknown]
  - Emotional distress [Unknown]

NARRATIVE: CASE EVENT DATE: 1999
